FAERS Safety Report 10178638 (Version 1)
Quarter: 2014Q2

REPORT INFORMATION
  Report Type: Spontaneous
  Country: US (occurrence: US)
  Receive Date: 20140519
  Receipt Date: 20140519
  Transmission Date: 20141212
  Serious: No
  Sender: FDA-Public Use
  Company Number: US-B.I. PHARMACEUTICALS,INC./RIDGEFIELD-2014-BI-20409BP

PATIENT
  Age: 76 Year
  Sex: Female

DRUGS (1)
  1. ZANTAC (RANITIDINE HYDROCHLORIDE) [Suspect]
     Indication: IMPAIRED GASTRIC EMPTYING
     Dosage: 225 MG
     Route: 048
     Dates: start: 20140506

REACTIONS (2)
  - Overdose [Unknown]
  - Off label use [Unknown]
